FAERS Safety Report 15413999 (Version 7)
Quarter: 2020Q4

REPORT INFORMATION
  Report Type: Report from Study
  Country: ES (occurrence: ES)
  Receive Date: 20180921
  Receipt Date: 20201012
  Transmission Date: 20210113
  Serious: Yes (Hospitalization)
  Sender: FDA-Public Use
  Company Number: PHHO2018ES010248

PATIENT
  Age: 61 Year
  Sex: Female
  Weight: 56 kg

DRUGS (24)
  1. AMOXICILLIN. [Concomitant]
     Active Substance: AMOXICILLIN
     Indication: INFLUENZA
     Dosage: UNK
     Route: 065
     Dates: start: 20180110, end: 20180121
  2. ACETILCISTEINA [Concomitant]
     Active Substance: ACETYLCYSTEINE
     Indication: ANTIFUNGAL PROPHYLAXIS
     Dosage: UNK
     Route: 065
     Dates: start: 20180129
  3. IOBITRIDOL [Concomitant]
     Active Substance: IOBITRIDOL
     Indication: CONTRAST MEDIA ALLERGY
     Dosage: UNK
     Route: 065
     Dates: end: 20180214
  4. BETADERMIC [Concomitant]
     Indication: RASH
     Dosage: UNK
     Route: 065
     Dates: start: 20180424
  5. CLOBETASOL PROPIONATE. [Concomitant]
     Active Substance: CLOBETASOL PROPIONATE
     Indication: RASH
     Dosage: UNK
     Route: 065
     Dates: start: 20180316
  6. CETIRIZINE HYDROCHLORIDE. [Concomitant]
     Active Substance: CETIRIZINE HYDROCHLORIDE
     Indication: PRURITUS
     Dosage: UNK
     Route: 065
     Dates: start: 20180322
  7. MEPROBAMATE. [Concomitant]
     Active Substance: MEPROBAMATE
     Indication: DRY MOUTH
     Dosage: UNK
     Route: 065
     Dates: start: 20180515, end: 20180607
  8. IODIXANOL. [Concomitant]
     Active Substance: IODIXANOL
     Indication: CONTRAST MEDIA ALLERGY
     Dosage: UNK
     Route: 065
     Dates: start: 20180214, end: 20180214
  9. PREDNISONE. [Concomitant]
     Active Substance: PREDNISONE
     Indication: RASH
     Dosage: UNK
     Route: 065
     Dates: start: 20180424
  10. PDR001 [Suspect]
     Active Substance: SPARTALIZUMAB
     Indication: NON-SMALL CELL LUNG CANCER
     Dosage: 400 MG, Q4W
     Route: 042
     Dates: start: 20180205, end: 20180711
  11. NOCTAMID [Concomitant]
     Active Substance: LORMETAZEPAM
     Indication: PROPHYLAXIS
     Dosage: UNK
     Route: 065
     Dates: start: 20160606
  12. AMOXICILLIN. [Concomitant]
     Active Substance: AMOXICILLIN
     Indication: ABSCESS
     Dosage: UNK
     Route: 065
     Dates: start: 20180129, end: 20180204
  13. FLUNUTRAC [Concomitant]
     Indication: PROPHYLAXIS
     Dosage: UNK
     Route: 065
     Dates: start: 20180212
  14. IOPAMIDOL [Concomitant]
     Active Substance: IOPAMIDOL
     Indication: CONTRAST MEDIA ALLERGY
     Dosage: UNK
     Route: 065
     Dates: start: 20180214, end: 20180214
  15. EBASTEL [Concomitant]
     Active Substance: EBASTINE
     Indication: RASH
     Dosage: UNK
     Route: 065
     Dates: start: 20180312, end: 20180316
  16. PREDNISONE. [Concomitant]
     Active Substance: PREDNISONE
     Indication: LICHEN PLANUS
  17. UROSENS FORTE PLUS [Concomitant]
     Dosage: UNK
     Route: 065
     Dates: start: 20180610, end: 20180619
  18. IOMEPROL [Concomitant]
     Active Substance: IOMEPROL
     Indication: CONTRAST MEDIA ALLERGY
     Dosage: UNK
     Route: 065
     Dates: start: 20180214, end: 20180214
  19. CANAKINUMAB. [Suspect]
     Active Substance: CANAKINUMAB
     Indication: NON-SMALL CELL LUNG CANCER
     Dosage: 600 MG, OT
     Route: 030
     Dates: start: 20180205, end: 20180530
  20. RINOVITEX [Concomitant]
     Indication: XEROSIS
     Dosage: UNK
     Route: 065
     Dates: start: 20180306
  21. IBUPROFEN. [Concomitant]
     Active Substance: IBUPROFEN
     Indication: PROPHYLAXIS
     Dosage: UNK
     Route: 065
     Dates: start: 20160525
  22. UROSENS FORTE PLUS [Concomitant]
     Indication: PROPHYLAXIS
     Dosage: UNK
     Route: 065
     Dates: start: 20180129
  23. PERIO AID [Concomitant]
     Indication: ABSCESS
     Dosage: UNK
     Route: 065
     Dates: start: 20180129
  24. HYDROXYZINE [Concomitant]
     Active Substance: HYDROXYZINE HYDROCHLORIDE
     Indication: PRURITUS
     Dosage: UNK
     Route: 065
     Dates: start: 20180315

REACTIONS (1)
  - Adrenal insufficiency [Recovered/Resolved]

NARRATIVE: CASE EVENT DATE: 20180912
